FAERS Safety Report 8866061 (Version 1)
Quarter: 2012Q4

REPORT INFORMATION
  Report Type: 
  Country: DE (occurrence: DE)
  Receive Date: 20121025
  Receipt Date: 20121025
  Transmission Date: 20130627
  Serious: Yes (Hospitalization, Disabling, Congenital Anomaly, Other)
  Sender: FDA-Public Use
  Company Number: DE-MYLANLABS-2012S1021224

PATIENT
  Age: 0 Year
  Sex: Male
  Weight: 3.78 kg

DRUGS (2)
  1. CITALOPRAM [Suspect]
     Dosage: probably taken throughout pregnancy, but exact information not given
     Route: 064
  2. THYROXIN [Concomitant]
     Dosage: unknown  dosage, probably taken throughout pregnancy
     Route: 064

REACTIONS (6)
  - Ventricular septal defect [Unknown]
  - Cleft lip and palate [Not Recovered/Not Resolved]
  - Atrial septal defect [Unknown]
  - Hypoglycaemia neonatal [Recovered/Resolved]
  - Neonatal respiratory distress syndrome [Recovered/Resolved]
  - Exposure during pregnancy [Unknown]
